FAERS Safety Report 8100202-7 (Version None)
Quarter: 2012Q1

REPORT INFORMATION
  Report Type: 
  Country: None (occurrence: None)
  Receive Date: 20120129
  Receipt Date: 20111109
  Transmission Date: 20120608
  Serious: Yes (Other)
  Sender: FDA-Public Use
  Company Number: US-ABBOTT-11P-163-0854431-00

PATIENT
  Sex: Male

DRUGS (5)
  1. HYDROCODONE BITARTRATE [Concomitant]
     Indication: PAIN
  2. KEFLEX [Concomitant]
     Indication: CYST
  3. HUMIRA [Suspect]
     Indication: PSORIASIS
     Route: 058
     Dates: start: 20110301, end: 20110727
  4. KEFLEX [Concomitant]
     Indication: INFECTION
  5. COLACE [Concomitant]
     Indication: CONSTIPATION PROPHYLAXIS

REACTIONS (1)
  - PILONIDAL CYST [None]
